FAERS Safety Report 17638038 (Version 2)
Quarter: 2023Q2

REPORT INFORMATION
  Report Type: Spontaneous
  Country: US (occurrence: US)
  Receive Date: 20200407
  Receipt Date: 20230502
  Transmission Date: 20230721
  Serious: Yes (Hospitalization)
  Sender: FDA-Public Use
  Company Number: US-AMNEAL PHARMACEUTICALS-2020-AMRX-00154

PATIENT
  Sex: Female

DRUGS (3)
  1. VIGABATRIN [Suspect]
     Active Substance: VIGABATRIN
     Indication: Epilepsy
     Dosage: 750 MG IN THE MORNING AND 1000 MG IN THE EVENING
     Route: 048
     Dates: start: 2019
  2. VIGABATRIN [Suspect]
     Active Substance: VIGABATRIN
     Dosage: 12 MILLILITER, 2X/DAY, UNK, 2X/DAY, 12ML IN MORNING AND 12 NIGHT
     Route: 048
  3. AFINITOR [Concomitant]
     Active Substance: EVEROLIMUS
     Indication: Product used for unknown indication
     Dosage: 3 TABLETS, QD
     Route: 048

REACTIONS (2)
  - Seizure [Unknown]
  - Product dose omission issue [Unknown]
